FAERS Safety Report 25304999 (Version 2)
Quarter: 2025Q2

REPORT INFORMATION
  Report Type: Report from Study
  Country: GB (occurrence: GB)
  Receive Date: 20250513
  Receipt Date: 20250526
  Transmission Date: 20250716
  Serious: Yes (Hospitalization, Disabling, Other)
  Sender: UCB
  Company Number: GB-UCBSA-2025027678

PATIENT
  Sex: Male

DRUGS (2)
  1. CERTOLIZUMAB PEGOL [Suspect]
     Active Substance: CERTOLIZUMAB PEGOL
     Indication: Spinal osteoarthritis
     Dosage: 200 MILLIGRAM, EV 2 WEEKS(QOW)
  2. CERTOLIZUMAB PEGOL [Suspect]
     Active Substance: CERTOLIZUMAB PEGOL
     Indication: Abdominal discomfort

REACTIONS (13)
  - Hospitalisation [Unknown]
  - Abdominal pain upper [Unknown]
  - Spinal fracture [Unknown]
  - Rib fracture [Unknown]
  - Fall [Unknown]
  - Disability [Unknown]
  - Feeding disorder [Unknown]
  - Diarrhoea [Not Recovered/Not Resolved]
  - Oral candidiasis [Unknown]
  - Tachycardia [Unknown]
  - Pyrexia [Unknown]
  - Malaise [Unknown]
  - Product use in unapproved indication [Unknown]
